FAERS Safety Report 7715551-1 (Version None)
Quarter: 2011Q3

REPORT INFORMATION
  Report Type: 
  Country: None (occurrence: None)
  Receive Date: 20110829
  Receipt Date: 20110816
  Transmission Date: 20111222
  Serious: Yes (Other)
  Sender: FDA-Public Use
  Company Number: GB-JNJFOC-20110704921

PATIENT
  Age: 61 Year
  Sex: Female

DRUGS (12)
  1. TRAMADOL HCL [Suspect]
     Indication: PRODUCT USED FOR UNKNOWN INDICATION
     Route: 065
  2. DICLOFENAC GEL [Concomitant]
     Route: 065
  3. ACETAMINOPHEN [Suspect]
     Route: 065
  4. NAPROXEN [Suspect]
     Indication: PRODUCT USED FOR UNKNOWN INDICATION
     Route: 065
  5. FLUTICASONE PROPIONATE [Concomitant]
     Route: 065
  6. LANSOPRAZOLE [Concomitant]
     Route: 065
  7. VENTOLIN HFA [Concomitant]
     Route: 065
  8. MISOPROSTOL [Suspect]
     Indication: PRODUCT USED FOR UNKNOWN INDICATION
     Route: 065
  9. CITALOPRAM [Concomitant]
     Route: 065
  10. ACETAMINOPHEN [Suspect]
     Indication: PRODUCT USED FOR UNKNOWN INDICATION
     Route: 065
  11. AMITRIPTYLINE HCL [Suspect]
     Indication: PRODUCT USED FOR UNKNOWN INDICATION
     Route: 065
  12. OXYBUTYNIN [Concomitant]
     Route: 065

REACTIONS (7)
  - MUSCULOSKELETAL STIFFNESS [None]
  - ASTHMA [None]
  - SWELLING [None]
  - OSTEOARTHRITIS [None]
  - RHEUMATOID ARTHRITIS [None]
  - IDIOPATHIC THROMBOCYTOPENIC PURPURA [None]
  - PAIN [None]
